FAERS Safety Report 15387845 (Version 2)
Quarter: 2018Q4

REPORT INFORMATION
  Report Type: Spontaneous
  Country: US (occurrence: US)
  Receive Date: 20180914
  Receipt Date: 20181016
  Transmission Date: 20190204
  Serious: No
  Sender: FDA-Public Use
  Company Number: US-ASTRAZENECA-2018SF16842

PATIENT
  Age: 602 Month
  Sex: Male
  Weight: 86.2 kg

DRUGS (4)
  1. BYDUREON BCISE [Suspect]
     Active Substance: EXENATIDE
     Indication: BLOOD GLUCOSE ABNORMAL
     Route: 058
     Dates: start: 201808
  2. BYDUREON [Suspect]
     Active Substance: EXENATIDE
     Indication: PANCREATIC DISORDER
     Route: 058
     Dates: end: 201808
  3. BYDUREON [Suspect]
     Active Substance: EXENATIDE
     Indication: BLOOD GLUCOSE ABNORMAL
     Route: 058
     Dates: end: 201808
  4. BYDUREON BCISE [Suspect]
     Active Substance: EXENATIDE
     Indication: PANCREATIC DISORDER
     Route: 058
     Dates: start: 201808

REACTIONS (3)
  - Wrong technique in product usage process [Unknown]
  - Device issue [Unknown]
  - Injection site extravasation [Unknown]

NARRATIVE: CASE EVENT DATE: 201808
